FAERS Safety Report 17763573 (Version 1)
Quarter: 2020Q2

REPORT INFORMATION
  Report Type: Report from Study
  Country: ES (occurrence: ES)
  Receive Date: 20200509
  Receipt Date: 20200509
  Transmission Date: 20200714
  Serious: Yes (Hospitalization)
  Sender: FDA-Public Use
  Company Number: ES-TEVA-2020-ES-1231845

PATIENT
  Age: 78 Year
  Sex: Female

DRUGS (5)
  1. ACETILSALICILICO ACIDO (176A) [Interacting]
     Active Substance: ASPIRIN
     Dosage: 100 MG
     Route: 048
  2. METFORMINA (1359A) [Concomitant]
     Active Substance: METFORMIN HYDROCHLORIDE
     Indication: DIABETES MELLITUS
     Dosage: 2550 MG
     Route: 048
  3. FESOTERODINA FUMARATO (8082FF) [Concomitant]
     Dosage: 8 MG
     Route: 048
     Dates: start: 20161117, end: 20170827
  4. IBUPROFENO (1769A) [Suspect]
     Active Substance: IBUPROFEN
     Dosage: 1 DOSAGE FORMS
     Route: 048
     Dates: end: 20170826
  5. AMIODARONA HIDROCLORURO (392CH) [Interacting]
     Active Substance: AMIODARONE
     Indication: ATRIAL FIBRILLATION
     Dosage: 200 MG
     Route: 048

REACTIONS (2)
  - Drug interaction [Unknown]
  - Lower gastrointestinal haemorrhage [Recovered/Resolved]

NARRATIVE: CASE EVENT DATE: 20170813
